FAERS Safety Report 6848793-8 (Version None)
Quarter: 2010Q3

REPORT INFORMATION
  Report Type: 
  Country: None (occurrence: None)
  Receive Date: 20100716
  Receipt Date: 20070910
  Transmission Date: 20110219
  Serious: Yes (Other)
  Sender: FDA-Public Use
  Company Number: US-PFIZER INC-2007076118

PATIENT
  Sex: Female
  Weight: 75 kg

DRUGS (6)
  1. CHANTIX [Suspect]
     Indication: SMOKING CESSATION THERAPY
     Dates: start: 20070908
  2. XANAX [Concomitant]
  3. ZETIA [Concomitant]
  4. LESCOL [Concomitant]
  5. ESTRADIOL [Concomitant]
  6. HYDROCODONE [Concomitant]

REACTIONS (1)
  - CHEST DISCOMFORT [None]
